FAERS Safety Report 14081624 (Version 1)
Quarter: 2017Q4

REPORT INFORMATION
  Report Type: Spontaneous
  Country: US (occurrence: US)
  Receive Date: 20171013
  Receipt Date: 20171013
  Transmission Date: 20180321
  Serious: Yes (Disabling, Other)
  Sender: FDA-Public Use
  Company Number: None

PATIENT
  Age: 58 Year
  Sex: Female
  Weight: 77.4 kg

DRUGS (8)
  1. HYDROCHLOROTHIAZIDE. [Concomitant]
     Active Substance: HYDROCHLOROTHIAZIDE
  2. FLUTICASONE. [Concomitant]
     Active Substance: FLUTICASONE
  3. CLARITIN [Concomitant]
     Active Substance: LORATADINE
  4. AZATHIPRINE 50 MG TABLET [Suspect]
     Active Substance: AZATHIOPRINE
     Indication: RHEUMATOID ARTHRITIS
     Dosage: ?          QUANTITY:315 TABLET(S);?
     Route: 048
  5. LEVOTHYROXIN [Concomitant]
     Active Substance: LEVOTHYROXINE
  6. OMEPRAZOLE. [Concomitant]
     Active Substance: OMEPRAZOLE
  7. QVAR [Concomitant]
     Active Substance: BECLOMETHASONE DIPROPIONATE
  8. METHENAMINE HIPPURATE. [Concomitant]
     Active Substance: METHENAMINE HIPPURATE

REACTIONS (3)
  - Urinary tract infection [None]
  - Rheumatoid arthritis [None]
  - Blood bilirubin increased [None]

NARRATIVE: CASE EVENT DATE: 20151104
